FAERS Safety Report 20954732 (Version 1)
Quarter: 2022Q2

REPORT INFORMATION
  Report Type: Spontaneous
  Country: US (occurrence: US)
  Receive Date: 20220614
  Receipt Date: 20220614
  Transmission Date: 20220721
  Serious: No
  Sender: FDA-Public Use
  Company Number: US-TEVA-2022-US-2043881

PATIENT
  Age: 72 Year
  Sex: Male
  Weight: 74.84 kg

DRUGS (3)
  1. QNASL [Suspect]
     Active Substance: BECLOMETHASONE DIPROPIONATE
     Indication: Upper-airway cough syndrome
     Dosage: 1 ACTUATION IN EACH NOSTRIL IN THE MORNING AND AT NIGHT
     Route: 065
     Dates: start: 202205
  2. QNASL [Suspect]
     Active Substance: BECLOMETHASONE DIPROPIONATE
  3. QNASL [Suspect]
     Active Substance: BECLOMETHASONE DIPROPIONATE

REACTIONS (2)
  - Inappropriate schedule of product administration [Unknown]
  - Therapeutic response shortened [Unknown]

NARRATIVE: CASE EVENT DATE: 20220501
